FAERS Safety Report 8859182 (Version 2)
Quarter: 2012Q4

REPORT INFORMATION
  Report Type: 
  Country: US (occurrence: US)
  Receive Date: 20121024
  Receipt Date: 20121207
  Transmission Date: 20130627
  Serious: No
  Sender: FDA-Public Use
  Company Number: US-PFIZER INC-2012262232

PATIENT
  Age: 64 Year
  Sex: Male
  Weight: 72.11 kg

DRUGS (4)
  1. INLYTA [Suspect]
     Indication: MALIGNANT URINARY TRACT NEOPLASM
     Dosage: 5 mg, 2x/day for two weeks
     Dates: start: 201209
  2. INLYTA [Suspect]
     Dosage: 7 mg, 2x/day for two weeks
  3. INLYTA [Suspect]
     Dosage: 10 mg, 2x/day
     Dates: start: 201211
  4. COUMADIN [Concomitant]
     Indication: ANTICOAGULANT THERAPY
     Dosage: UNK

REACTIONS (6)
  - Fatigue [Unknown]
  - Balance disorder [Unknown]
  - International normalised ratio decreased [Unknown]
  - Memory impairment [Unknown]
  - Speech disorder [Unknown]
  - Dysgraphia [Unknown]
